FAERS Safety Report 16262283 (Version 1)
Quarter: 2019Q2

REPORT INFORMATION
  Report Type: Report from Study
  Country: US (occurrence: US)
  Receive Date: 20190501
  Receipt Date: 20190501
  Transmission Date: 20190711
  Serious: Yes (Hospitalization)
  Sender: FDA-Public Use
  Company Number: US-CELGENEUS-USA-20190408868

PATIENT
  Age: 47 Year
  Sex: Female
  Weight: 65.8 kg

DRUGS (3)
  1. REVLIMID [Suspect]
     Active Substance: LENALIDOMIDE
     Indication: PLASMA CELL MYELOMA
     Dosage: 262.5 MILLIGRAM
     Route: 048
     Dates: start: 20190103, end: 20190417
  2. IXAZOMIB [Suspect]
     Active Substance: IXAZOMIB
     Indication: PLASMA CELL MYELOMA
     Dosage: 4 MILLIGRAM
     Route: 048
     Dates: start: 20190103, end: 20190419
  3. DEXAMETHASONE ORAL [Suspect]
     Active Substance: DEXAMETHASONE
     Indication: PLASMA CELL MYELOMA
     Dosage: 40 MILLIGRAM
     Route: 048
     Dates: start: 20190103, end: 20190420

REACTIONS (12)
  - Anaemia [Unknown]
  - Chronic kidney disease [Unknown]
  - Thrombocytopenia [Recovering/Resolving]
  - Diarrhoea [Unknown]
  - Vomiting [Unknown]
  - Gingival bleeding [Unknown]
  - Epistaxis [Recovered/Resolved]
  - Asymptomatic bacteriuria [Unknown]
  - Red blood cell count decreased [Unknown]
  - Leukopenia [Unknown]
  - Contusion [Unknown]
  - Lip haematoma [Recovered/Resolved]

NARRATIVE: CASE EVENT DATE: 20190416
